FAERS Safety Report 5466043-4 (Version None)
Quarter: 2007Q3

REPORT INFORMATION
  Report Type: 
  Country: None (occurrence: None)
  Receive Date: 20070924
  Receipt Date: 20070918
  Transmission Date: 20080115
  Serious: Yes (Death)
  Sender: FDA-Public Use
  Company Number: KE-BOEHRINGER INGELHEIM PHARMACEUTICALS, INC.-2007-BP-21423BP

PATIENT
  Age: 46 Year
  Sex: Female
  Weight: 42 kg

DRUGS (5)
  1. VIRAMUNE [Suspect]
     Indication: HIV INFECTION
     Route: 048
     Dates: start: 20070625, end: 20070731
  2. EMTRICITABINE/TENOFOVIR [Suspect]
     Indication: HIV INFECTION
     Dates: start: 20070625, end: 20070731
  3. COTRIMOXAZOLE [Concomitant]
  4. PLASIL [Concomitant]
  5. FANSIDAR [Concomitant]

REACTIONS (11)
  - ABASIA [None]
  - DIARRHOEA [None]
  - ELECTROCARDIOGRAM LOW VOLTAGE [None]
  - FATIGUE [None]
  - GENERAL PHYSICAL HEALTH DETERIORATION [None]
  - HAEMOGLOBIN DECREASED [None]
  - MALARIA [None]
  - PLATELET COUNT DECREASED [None]
  - RENAL FAILURE ACUTE [None]
  - SINUS TACHYCARDIA [None]
  - WEIGHT DECREASED [None]
